FAERS Safety Report 15929781 (Version 2)
Quarter: 2019Q1

REPORT INFORMATION
  Report Type: Spontaneous
  Country: CA (occurrence: CA)
  Receive Date: 20190206
  Receipt Date: 20190308
  Transmission Date: 20190417
  Serious: Yes (Hospitalization)
  Sender: FDA-Public Use
  Company Number: CA-ASCEND THERAPEUTICS-2062251

PATIENT
  Age: 52 Year
  Sex: Female

DRUGS (6)
  1. LORATADINE. [Suspect]
     Active Substance: LORATADINE
     Route: 048
  2. CRINONE [Suspect]
     Active Substance: PROGESTERONE
  3. ESTROGEL [Suspect]
     Active Substance: ESTRADIOL
     Indication: PRODUCT USED FOR UNKNOWN INDICATION
  4. PRASTERONE (PRASTERONE) [Suspect]
     Active Substance: PRASTERONE
     Route: 067
  5. CLARITIN-D?(PSEUDOEPHEDRINE SULFATE LORATADINE) [Concomitant]
     Route: 048
  6. BUDESONIDE. [Suspect]
     Active Substance: BUDESONIDE

REACTIONS (9)
  - Cellulitis [Unknown]
  - Swelling face [Unknown]
  - Periorbital oedema [Unknown]
  - Rash [Unknown]
  - Tinnitus [Unknown]
  - Head discomfort [Unknown]
  - Photosensitivity reaction [Unknown]
  - Butterfly rash [Unknown]
  - Feeling hot [Unknown]
